FAERS Safety Report 9034525 (Version 1)
Quarter: 2013Q1

REPORT INFORMATION
  Report Type: Spontaneous
  Country: US (occurrence: US)
  Receive Date: 20130128
  Receipt Date: 20130128
  Transmission Date: 20140127
  Serious: No
  Sender: FDA-Public Use
  Company Number: US-ASTRAZENECA-2013SE03147

PATIENT
  Age: 55 Year
  Sex: Male
  Weight: 81.6 kg

DRUGS (6)
  1. SYMBICORT PMDI [Suspect]
     Indication: RESPIRATORY DISORDER
     Dosage: 160/4.5 MCG 2 PUFFS,TWO TIMES A DAY
     Route: 055
     Dates: start: 20121212, end: 20130113
  2. SYMBICORT PMDI [Suspect]
     Indication: PULMONARY CONGESTION
     Dosage: 160/4.5 MCG 2 PUFFS,TWO TIMES A DAY
     Route: 055
     Dates: start: 20121212, end: 20130113
  3. COUMADIN [Concomitant]
     Indication: DEEP VEIN THROMBOSIS
  4. POTASSIUM CITRATE [Concomitant]
     Indication: NEPHROLITHIASIS
  5. HYDROCODONE CHLOROPHENIRAM [Concomitant]
     Indication: COUGH
  6. OLAX E [Concomitant]
     Indication: ECZEMA

REACTIONS (6)
  - Muscular weakness [Recovering/Resolving]
  - Influenza like illness [Not Recovered/Not Resolved]
  - Muscle spasms [Recovering/Resolving]
  - Headache [Unknown]
  - Insomnia [Unknown]
  - Off label use [Unknown]
